FAERS Safety Report 8963982 (Version 2)
Quarter: 2013Q2

REPORT INFORMATION
  Report Type: Spontaneous
  Country: US (occurrence: US)
  Receive Date: 20121213
  Receipt Date: 20130107
  Transmission Date: 20140414
  Serious: Yes (Other)
  Sender: FDA-Public Use
  Company Number: PHEH2012US014793

PATIENT
  Age: 65 Year
  Sex: Female
  Weight: 65.8 kg

DRUGS (12)
  1. GILENYA [Suspect]
     Indication: MULTIPLE SCLEROSIS
     Dosage: 0.5 MG, QD
     Route: 048
     Dates: start: 20120709
  2. ZOCOR [Concomitant]
     Dosage: 20 MG, UNK
     Route: 048
  3. EXCEDRIN [Concomitant]
     Indication: MIGRAINE
     Route: 048
  4. NASONEX [Concomitant]
     Dosage: 50 UG, UNK
  5. ALLEGRA [Concomitant]
     Dosage: 180 MG, UNK
  6. NEXIUM [Concomitant]
     Dosage: 20 MG, UNK
     Route: 048
  7. VITAMIN D [Concomitant]
     Dosage: 50000 IU, UNK
     Route: 048
  8. METANX [Concomitant]
     Route: 048
  9. MULTIVITAMIN [Concomitant]
     Dosage: UNK UKN, UNK
  10. FLECTOR [Concomitant]
     Dosage: 1.3 %, UNK
  11. CALCIUM [Concomitant]
     Dosage: 500 (UNKNOWN UNITS AND FREQUENCY)
     Route: 048
  12. ALPHA LIPOIC ACID [Concomitant]
     Dosage: 100 MG, UNK
     Route: 048

REACTIONS (11)
  - Heart rate irregular [Unknown]
  - Vertigo [Not Recovered/Not Resolved]
  - Thinking abnormal [Not Recovered/Not Resolved]
  - Eye oedema [Unknown]
  - Balance disorder [Unknown]
  - Hypertension [Not Recovered/Not Resolved]
  - Cough [Unknown]
  - Headache [Unknown]
  - Vision blurred [Unknown]
  - Eye pain [Unknown]
  - Paraesthesia [Unknown]
